FAERS Safety Report 24273047 (Version 1)
Quarter: 2024Q3

REPORT INFORMATION
  Report Type: Spontaneous
  Country: HK (occurrence: HK)
  Receive Date: 20240902
  Receipt Date: 20240902
  Transmission Date: 20241017
  Serious: Yes (Death, Other)
  Sender: AMGEN
  Company Number: HK-AMGEN-HKGSP2024173399

PATIENT
  Age: 59 Year
  Sex: Male

DRUGS (5)
  1. LUMAKRAS [Suspect]
     Active Substance: SOTORASIB
     Indication: Adenocarcinoma pancreas
     Dosage: UNK
     Route: 048
  2. LUMAKRAS [Suspect]
     Active Substance: SOTORASIB
     Dosage: 960 MILLIGRAM, QD
     Route: 048
  3. LUMAKRAS [Suspect]
     Active Substance: SOTORASIB
     Dosage: 960 MILLIGRAM, QD
     Route: 048
  4. TRAMETINIB [Suspect]
     Active Substance: TRAMETINIB
     Indication: Adenocarcinoma pancreas
     Dosage: UNK
     Route: 065
  5. TRAMETINIB [Suspect]
     Active Substance: TRAMETINIB
     Dosage: 2 MILLIGRAM, QD
     Route: 048

REACTIONS (6)
  - Lower respiratory tract infection [Fatal]
  - Adenocarcinoma pancreas [Recovering/Resolving]
  - Skin toxicity [Unknown]
  - Diarrhoea [Recovering/Resolving]
  - Therapeutic product effect decreased [Unknown]
  - Off label use [Unknown]
